FAERS Safety Report 4786593-3 (Version None)
Quarter: 2005Q3

REPORT INFORMATION
  Report Type: 
  Country: None (occurrence: None)
  Receive Date: 20050927
  Receipt Date: 20050628
  Transmission Date: 20060218
  Serious: No
  Sender: FDA-Public Use
  Company Number: USA0506101571

PATIENT
  Age: 63 Year
  Sex: Female

DRUGS (11)
  1. FORTEO [Suspect]
     Indication: OSTEOPOROSIS
     Dates: start: 20050610
  2. CYMBALTA [Suspect]
     Indication: DEPRESSION
     Dosage: 60 MG DAY
     Dates: start: 20050606
  3. STRATTERA [Suspect]
     Indication: FIBROMYALGIA
     Dosage: 40 MG DAY
     Dates: start: 20040101
  4. ESTRADIOL [Concomitant]
  5. PREVACID [Concomitant]
  6. AMBIEN [Concomitant]
  7. VICODIN [Concomitant]
  8. NEURONTIN [Concomitant]
  9. VITAMIN E [Concomitant]
  10. CALCIUM WITH VITAMIN D [Concomitant]
  11. SOLIFENACIN [Concomitant]

REACTIONS (3)
  - BURNING SENSATION [None]
  - DRUG INEFFECTIVE [None]
  - INJECTION SITE HAEMORRHAGE [None]
